FAERS Safety Report 26071267 (Version 3)
Quarter: 2025Q4

REPORT INFORMATION
  Report Type: Spontaneous
  Country: US (occurrence: US)
  Receive Date: 20251120
  Receipt Date: 20251215
  Transmission Date: 20260118
  Serious: No
  Sender: ROCHE
  Company Number: US-ROCHE-10000435923

PATIENT
  Sex: Female
  Weight: 66.7 kg

DRUGS (1)
  1. ACTEMRA ACTPEN [Suspect]
     Active Substance: TOCILIZUMAB
     Indication: Rheumatoid arthritis
     Dosage: STRENGTH: 162 MG/ 0.9 M
     Route: 058
     Dates: start: 20250817

REACTIONS (3)
  - Device defective [Unknown]
  - Product dose omission issue [Unknown]
  - No adverse event [Unknown]
